FAERS Safety Report 8252385-6 (Version None)
Quarter: 2012Q2

REPORT INFORMATION
  Report Type: 
  Country: None (occurrence: None)
  Receive Date: 20120402
  Receipt Date: 20110608
  Transmission Date: 20120825
  Serious: No
  Sender: FDA-Public Use
  Company Number: US-ABBOTT-11P-163-0804657-00

PATIENT
  Sex: Male
  Weight: 100 kg

DRUGS (3)
  1. TESTOSTERONE [Suspect]
     Indication: BLOOD TESTOSTERONE DECREASED
     Dosage: DAILY DOSE: 5 GRAM(S), FREQUENCY: ONCE A DAY
     Route: 062
     Dates: start: 20100101
  2. VALSARTAN [Concomitant]
     Indication: HYPERTENSION
     Dosage: DAILY DOSE:  UNKNOWN, FREQUENCY: ONCE A DAY
     Route: 048
  3. CARVEDILOL [Concomitant]
     Indication: CARDIAC FAILURE
     Dosage: DAILY DOSE:  UNKNOWN, FREQUENCY: ONCE A DAY
     Route: 048

REACTIONS (2)
  - DIZZINESS [None]
  - PAIN IN EXTREMITY [None]
